FAERS Safety Report 4300905-6 (Version None)
Quarter: 2004Q1

REPORT INFORMATION
  Report Type: 
  Country: None (occurrence: None)
  Receive Date: 20040219
  Receipt Date: 20040204
  Transmission Date: 20041129
  Serious: Yes (Other)
  Sender: FDA-Public Use
  Company Number: 234023

PATIENT
  Age: 11 Year
  Sex: Female
  Weight: 40.5 kg

DRUGS (1)
  1. NORDITROPIN [Suspect]
     Indication: GROWTH HORMONE DEFICIENCY
     Dosage: 1.2 MG, QD, SUBCUTANEOUS
     Route: 058
     Dates: end: 20030228

REACTIONS (1)
  - OSTEOCHONDROSIS [None]
